FAERS Safety Report 7162964-5 (Version None)
Quarter: 2010Q4

REPORT INFORMATION
  Report Type: 
  Country: None (occurrence: None)
  Receive Date: 20101215
  Receipt Date: 20100203
  Transmission Date: 20110411
  Serious: Yes (Other)
  Sender: FDA-Public Use
  Company Number: US-PFIZER INC-2010014591

PATIENT

DRUGS (1)
  1. LYRICA [Suspect]

REACTIONS (2)
  - DYSPHAGIA [None]
  - SURGERY [None]
